FAERS Safety Report 6969923-3 (Version None)
Quarter: 2010Q3

REPORT INFORMATION
  Report Type: 
  Country: None (occurrence: None)
  Receive Date: 20100908
  Receipt Date: 20100826
  Transmission Date: 20110219
  Serious: Yes (Other)
  Sender: FDA-Public Use
  Company Number: US-PAR PHARMACEUTICAL, INC-2010SCPR000480

PATIENT

DRUGS (6)
  1. RANITIDINE [Suspect]
     Indication: HYPERCHLORHYDRIA
     Dosage: UNK
     Route: 065
     Dates: start: 20091101, end: 20100329
  2. CITALOPRAM HYDROBROMIDE [Concomitant]
  3. ATENOLOL [Concomitant]
  4. ADVAIR DISKUS 100/50 [Concomitant]
  5. PACIMOL [Concomitant]
     Indication: CONJUNCTIVITIS ALLERGIC
  6. SINGULAIR [Concomitant]

REACTIONS (12)
  - ABDOMINAL PAIN UPPER [None]
  - AMYOTROPHIC LATERAL SCLEROSIS [None]
  - FINGER DEFORMITY [None]
  - HYPOKINESIA [None]
  - MALAISE [None]
  - MUSCLE SPASMS [None]
  - MUSCLE TWITCHING [None]
  - MUSCULAR WEAKNESS [None]
  - NERVE INJURY [None]
  - PRODUCT ODOUR ABNORMAL [None]
  - PRODUCT QUALITY ISSUE [None]
  - TREMOR [None]
